FAERS Safety Report 21905676 (Version 1)
Quarter: 2023Q1

REPORT INFORMATION
  Report Type: Spontaneous
  Country: CN (occurrence: CN)
  Receive Date: 20230124
  Receipt Date: 20230124
  Transmission Date: 20230418
  Serious: Yes (Hospitalization, Other)
  Sender: FDA-Public Use
  Company Number: CN-PFIZER INC-PV202300013287

PATIENT
  Age: 25 Year
  Sex: Female
  Weight: 55 kg

DRUGS (3)
  1. ZITHROMAX [Suspect]
     Active Substance: AZITHROMYCIN DIHYDRATE
     Indication: Pelvic inflammatory disease
     Dosage: 0.5 G, 1X/DAY
     Route: 041
     Dates: start: 20230115, end: 20230116
  2. METRONIDAZOLE\SODIUM CHLORIDE [Suspect]
     Active Substance: METRONIDAZOLE\SODIUM CHLORIDE
     Indication: Pelvic inflammatory disease
     Dosage: 500 MG, 2X/DAY
     Route: 041
     Dates: start: 20230115, end: 20230116
  3. SODIUM CHLORIDE [Concomitant]
     Active Substance: SODIUM CHLORIDE
     Indication: Vehicle solution use
     Dosage: 250 ML, 1X/DAY
     Route: 041
     Dates: start: 20230115, end: 20230116

REACTIONS (3)
  - Vomiting [Recovered/Resolved]
  - Cough [Recovered/Resolved]
  - Dyspnoea [Recovered/Resolved]

NARRATIVE: CASE EVENT DATE: 20230116
